FAERS Safety Report 18751421 (Version 1)
Quarter: 2021Q1

REPORT INFORMATION
  Report Type: Spontaneous
  Country: US (occurrence: US)
  Receive Date: 20210118
  Receipt Date: 20210118
  Transmission Date: 20210419
  Serious: No
  Sender: FDA-Public Use
  Company Number: US-GW PHARMA-202101USGW00107

PATIENT

DRUGS (2)
  1. EPIDIOLEX [Suspect]
     Active Substance: CANNABIDIOL
     Indication: EPILEPSY
     Dosage: 5.04 MG/KG/DAY, 200 MILLIGRAM, BID (EVERY 12 HOURS)
     Route: 048
     Dates: start: 20201216
  2. EPIDIOLEX [Suspect]
     Active Substance: CANNABIDIOL
     Indication: EPILEPSY

REACTIONS (2)
  - Generalised tonic-clonic seizure [Unknown]
  - Weight increased [Unknown]

NARRATIVE: CASE EVENT DATE: 2021
